FAERS Safety Report 15203359 (Version 1)
Quarter: 2018Q3

REPORT INFORMATION
  Report Type: Spontaneous
  Country: US (occurrence: US)
  Receive Date: 20180627
  Receipt Date: 20180627
  Transmission Date: 20181010
  Serious: Yes (Hospitalization)
  Sender: FDA-Public Use
  Company Number: None

PATIENT
  Age: 67 Year
  Sex: Male
  Weight: 53.52 kg

DRUGS (1)
  1. AMOXCILLIN/CLAVULANATE [Suspect]
     Active Substance: AMOXICILLIN\CLAVULANATE POTASSIUM
     Indication: SINUSITIS
     Route: 048
     Dates: start: 20180308, end: 20180320

REACTIONS (4)
  - Epistaxis [None]
  - Thrombocytopenia [None]
  - Rash [None]
  - Oral mucosal blistering [None]

NARRATIVE: CASE EVENT DATE: 20180317
